FAERS Safety Report 25237734 (Version 1)
Quarter: 2025Q2

REPORT INFORMATION
  Report Type: Spontaneous
  Country: CA (occurrence: CA)
  Receive Date: 20250425
  Receipt Date: 20250425
  Transmission Date: 20250716
  Serious: Yes (Other)
  Sender: CELLTRION
  Company Number: CA-PFIZER INC-202500084268

PATIENT

DRUGS (6)
  1. INFLECTRA [Suspect]
     Active Substance: INFLIXIMAB-DYYB
     Indication: Crohn^s disease
     Route: 042
     Dates: start: 20250314
  2. INFLECTRA [Suspect]
     Active Substance: INFLIXIMAB-DYYB
     Route: 042
     Dates: start: 20250416
  3. CITALOPRAM [Concomitant]
     Active Substance: CITALOPRAM
  4. CLONIDINE [Concomitant]
     Active Substance: CLONIDINE
  5. DIAZEPAM [Concomitant]
     Active Substance: DIAZEPAM
  6. DIPHENHYDRAMINE [Concomitant]
     Active Substance: DIPHENHYDRAMINE
     Indication: Premedication
     Dates: start: 20250416, end: 20250416

REACTIONS (3)
  - Vitamin B12 decreased [Unknown]
  - Off label use [Unknown]
  - Product use issue [Unknown]
